FAERS Safety Report 8504205-X (Version None)
Quarter: 2012Q3

REPORT INFORMATION
  Report Type: 
  Country: None (occurrence: None)
  Receive Date: 20120711
  Receipt Date: 20120703
  Transmission Date: 20120928
  Serious: Yes (Hospitalization, Disabling, Other)
  Sender: FDA-Public Use
  Company Number: US-009507513-1108USA02812

PATIENT

DRUGS (11)
  1. MAXZIDE [Concomitant]
     Dates: start: 19700101
  2. FOSAMAX [Suspect]
     Indication: OSTEOPOROSIS
     Dosage: 40 MG, QW
     Route: 048
     Dates: start: 20000801, end: 20010201
  3. CHOLECALCIFEROL [Concomitant]
     Dosage: 50000 IU, QD
     Dates: start: 20060101
  4. POTASSIUM (UNSPECIFIED) [Concomitant]
     Dosage: 20 MG, QD
     Dates: start: 19970101
  5. FOSAMAX [Suspect]
     Dosage: 70 MG, QW
     Route: 048
     Dates: start: 20080401, end: 20100301
  6. CALCIUM (UNSPECIFIED) [Concomitant]
     Dosage: 1000 MG, QD
     Dates: start: 20000101
  7. ESTRACE [Concomitant]
     Dosage: 1 MG, UNK
     Dates: start: 19950101, end: 20110101
  8. PROVERA [Concomitant]
     Dosage: 2.5 MG, QD
     Dates: start: 19950101, end: 20110101
  9. PROMETRIUM [Concomitant]
     Dosage: 100 MG, QD
     Route: 048
  10. FOSAMAX [Suspect]
     Indication: OSTEOPENIA
     Dosage: 70 MG, QW
     Route: 048
     Dates: start: 20010201
  11. THYROLAR [Concomitant]
     Dosage: 3 DF, QD
     Dates: start: 19700101

REACTIONS (48)
  - FEMUR FRACTURE [None]
  - HYPOTENSION [None]
  - GINGIVAL DISORDER [None]
  - BONE LOSS [None]
  - OSTEITIS [None]
  - TACHYCARDIA [None]
  - HYPOALBUMINAEMIA [None]
  - TOOTH DISORDER [None]
  - RENAL CYST [None]
  - NERVE ROOT LESION [None]
  - HYPERSENSITIVITY [None]
  - HYPERTONIC BLADDER [None]
  - COLONIC POLYP [None]
  - ROTATOR CUFF SYNDROME [None]
  - SYNOVIAL CYST [None]
  - UTEROVAGINAL PROLAPSE [None]
  - HYPERGLYCAEMIA [None]
  - UROSEPSIS [None]
  - ASTHENIA [None]
  - BRONCHIECTASIS [None]
  - IRRITABLE BOWEL SYNDROME [None]
  - LOW TURNOVER OSTEOPATHY [None]
  - ENDOMETRIAL DISORDER [None]
  - BLOOD POTASSIUM DECREASED [None]
  - OSTEOARTHRITIS [None]
  - EPICONDYLITIS [None]
  - BACK PAIN [None]
  - DRUG HYPERSENSITIVITY [None]
  - URINARY TRACT INFECTION [None]
  - ANAEMIA POSTOPERATIVE [None]
  - HYPOKALAEMIA [None]
  - MACULAR DEGENERATION [None]
  - COLON ADENOMA [None]
  - ONYCHOMYCOSIS [None]
  - FALL [None]
  - ESCHERICHIA URINARY TRACT INFECTION [None]
  - HYPOCALCAEMIA [None]
  - ASTHMA [None]
  - LUNG NEOPLASM [None]
  - SCIATICA [None]
  - EYE DISORDER [None]
  - CONTUSION [None]
  - PULMONARY FIBROSIS [None]
  - MELANOSIS COLI [None]
  - INTERSTITIAL LUNG DISEASE [None]
  - POSTMENOPAUSAL HAEMORRHAGE [None]
  - SUBCUTANEOUS EMPHYSEMA [None]
  - GASTROOESOPHAGEAL REFLUX DISEASE [None]
